FAERS Safety Report 7283894-4 (Version None)
Quarter: 2011Q1

REPORT INFORMATION
  Report Type: 
  Country: None (occurrence: None)
  Receive Date: 20110209
  Receipt Date: 20110131
  Transmission Date: 20110831
  Serious: Yes (Life-Threatening, Hospitalization)
  Sender: FDA-Public Use
  Company Number: US-CELGENEUS-163-C5013-11012379

PATIENT
  Sex: Male
  Weight: 98.972 kg

DRUGS (14)
  1. DOCETAXEL [Suspect]
     Indication: PROSTATE CANCER
     Route: 065
     Dates: start: 20101123
  2. PROCHLORPERAZINE [Concomitant]
     Indication: NAUSEA
     Route: 048
     Dates: start: 20101113
  3. HYDROCODONE BITARTRATE AND ACETAMINOPHEN [Concomitant]
     Indication: PAIN
     Dosage: 5/500
     Route: 048
     Dates: start: 20080101
  4. OMEPRAZOLE [Concomitant]
     Route: 058
  5. CC-5013\PLACEBO [Suspect]
     Indication: PROSTATE CANCER
     Route: 048
     Dates: start: 20101123
  6. LUPRON [Concomitant]
     Route: 065
  7. ZOMETA [Concomitant]
     Route: 051
  8. HEPARIN [Concomitant]
     Route: 058
  9. PREDNISONE [Suspect]
     Indication: PROSTATE CANCER
     Route: 065
     Dates: start: 20101123
  10. CC-5013\PLACEBO [Suspect]
     Route: 048
     Dates: start: 20110104, end: 20110116
  11. DOCETAXEL [Suspect]
     Route: 065
     Dates: start: 20110104
  12. PREDNISONE [Suspect]
     Route: 065
     Dates: start: 20110104, end: 20110116
  13. UROXATRAL [Concomitant]
     Route: 065
  14. SODIUM CHLORIDE [Concomitant]
     Route: 058

REACTIONS (3)
  - SEPSIS [None]
  - ATRIAL FIBRILLATION [None]
  - ACUTE RESPIRATORY FAILURE [None]
